FAERS Safety Report 4290096-2 (Version None)
Quarter: 2004Q1

REPORT INFORMATION
  Report Type: 
  Country: None (occurrence: None)
  Receive Date: 20040209
  Receipt Date: 20040202
  Transmission Date: 20041129
  Serious: Yes (Disabling)
  Sender: FDA-Public Use
  Company Number: GBWYE561605FEB04

PATIENT
  Age: 79 Year
  Sex: Female

DRUGS (3)
  1. EFFEXOR [Suspect]
     Indication: ANXIETY
     Dosage: 1 DAILY(DOSE UNSPECIFIED), ORAL
     Route: 048
     Dates: start: 20030807
  2. DIETHYLAMINE SALICYLATE (DIETHYLAMINE SALICYLATE) [Concomitant]
  3. RISPERIDONE [Concomitant]

REACTIONS (5)
  - ANXIETY [None]
  - CONDITION AGGRAVATED [None]
  - DRUG WITHDRAWAL SYNDROME [None]
  - NAUSEA [None]
  - TREMOR [None]
